FAERS Safety Report 20950994 (Version 1)
Quarter: 2022Q2

REPORT INFORMATION
  Report Type: Report from Study
  Country: US (occurrence: US)
  Receive Date: 20220613
  Receipt Date: 20220613
  Transmission Date: 20220721
  Serious: Yes (Other)
  Sender: FDA-Public Use
  Company Number: US-PFIZER INC-202200804683

PATIENT
  Age: 68 Year
  Sex: Female
  Weight: 78.5 kg

DRUGS (20)
  1. SPIRONOLACTONE [Suspect]
     Active Substance: SPIRONOLACTONE
     Dosage: UNK
     Dates: end: 202205
  2. HYDROXYZINE PAMOATE [Suspect]
     Active Substance: HYDROXYZINE PAMOATE
     Indication: Urticaria
     Dosage: UNK
  3. KORLYM [Suspect]
     Active Substance: MIFEPRISTONE
     Indication: Cushing^s syndrome
     Dosage: 300 MG, DAILY
     Route: 048
     Dates: start: 20211014, end: 20211205
  4. KORLYM [Suspect]
     Active Substance: MIFEPRISTONE
     Dosage: 600 MG, DAILY
     Route: 048
     Dates: start: 20211206
  5. KORLYM [Suspect]
     Active Substance: MIFEPRISTONE
     Dosage: 900 MG, DAILY
     Route: 048
     Dates: start: 20220114
  6. FUROSEMIDE\POTASSIUM CHLORIDE [Suspect]
     Active Substance: FUROSEMIDE\POTASSIUM CHLORIDE
     Dosage: UNK
     Dates: end: 202205
  7. ATORVASTATIN [Concomitant]
     Active Substance: ATORVASTATIN
     Dosage: UNK
  8. FUROSEMIDE SODIUM [Concomitant]
     Active Substance: FUROSEMIDE SODIUM
     Dosage: UNK
  9. FERROUS GLUCONATE DIHYDRATE [Concomitant]
     Dosage: UNK
  10. FLUOXETINE [Concomitant]
     Active Substance: FLUOXETINE HYDROCHLORIDE
     Dosage: UNK
  11. KLOR-CON M10 [Concomitant]
     Active Substance: POTASSIUM CHLORIDE
     Dosage: UNK
  12. LEVOTHYROXINE [Concomitant]
     Active Substance: LEVOTHYROXINE
     Dosage: UNK
  13. METFORMIN [Concomitant]
     Active Substance: METFORMIN HYDROCHLORIDE
     Dosage: UNK
  14. PHENTERMINE [Concomitant]
     Active Substance: PHENTERMINE
     Dosage: STOPPED [TOOK HER OFF OF PHENTERMINE]
  15. VITAMIN B COMPLEX [Concomitant]
     Active Substance: CYANOCOBALAMIN\DEXPANTHENOL\NIACINAMIDE\PYRIDOXINE HYDROCHLORIDE\RIBOFLAVIN 5^-PHOSPHATE SODIUM\THIA
     Dosage: UNK
  16. VITAMIN C [Concomitant]
     Active Substance: ASCORBIC ACID
     Dosage: UNK
  17. ERGOCALCIFEROL [Concomitant]
     Active Substance: ERGOCALCIFEROL
     Dosage: UNK
  18. ZETIA [Concomitant]
     Active Substance: EZETIMIBE
     Dosage: UNK
  19. APAP CAPS [Concomitant]
     Dosage: UNK
  20. ROSUVASTATIN [Concomitant]
     Active Substance: ROSUVASTATIN
     Dosage: UNK

REACTIONS (39)
  - Glucocorticoid deficiency [Not Recovered/Not Resolved]
  - Wrist fracture [Unknown]
  - Hyperhidrosis [Unknown]
  - Temperature intolerance [Unknown]
  - Taste disorder [Not Recovered/Not Resolved]
  - Tremor [Unknown]
  - Chills [Unknown]
  - Chest pain [Unknown]
  - Muscle strain [Unknown]
  - Bowel movement irregularity [Unknown]
  - Dyschezia [Unknown]
  - Urinary tract infection [Not Recovered/Not Resolved]
  - Salt craving [Not Recovered/Not Resolved]
  - Feeling abnormal [Not Recovered/Not Resolved]
  - Abdominal distension [Unknown]
  - Blood creatinine increased [Unknown]
  - Urticaria [Not Recovered/Not Resolved]
  - Drug hypersensitivity [Not Recovered/Not Resolved]
  - Weight increased [Not Recovered/Not Resolved]
  - Headache [Recovering/Resolving]
  - Fatigue [Recovering/Resolving]
  - Dry mouth [Unknown]
  - Dyspepsia [Not Recovered/Not Resolved]
  - Dizziness [Unknown]
  - Swelling [Unknown]
  - Blood potassium decreased [Unknown]
  - Abdominal discomfort [Not Recovered/Not Resolved]
  - Somnolence [Not Recovered/Not Resolved]
  - Vomiting [Not Recovered/Not Resolved]
  - Gastrooesophageal reflux disease [Not Recovered/Not Resolved]
  - Decreased appetite [Not Recovered/Not Resolved]
  - Back pain [Unknown]
  - Pain [Recovering/Resolving]
  - Oedema [Unknown]
  - Arthralgia [Unknown]
  - Pruritus [Not Recovered/Not Resolved]
  - Rash [Unknown]
  - Anxiety [Not Recovered/Not Resolved]
  - Fluid retention [Not Recovered/Not Resolved]

NARRATIVE: CASE EVENT DATE: 20211115
